FAERS Safety Report 11311600 (Version 1)
Quarter: 2015Q3

REPORT INFORMATION
  Report Type: Spontaneous
  Country: GB (occurrence: GB)
  Receive Date: 20150727
  Receipt Date: 20150727
  Transmission Date: 20151125
  Serious: Yes (Life-Threatening)
  Sender: FDA-Public Use
  Company Number: GB-ACTAVIS-2015-15286

PATIENT
  Age: 42 Year
  Sex: Male
  Weight: 88.9 kg

DRUGS (1)
  1. DICLOFENAC (UNKNOWN) [Suspect]
     Active Substance: DICLOFENAC SODIUM
     Indication: GOUT
     Dosage: UNK
     Route: 048
     Dates: start: 20080213, end: 20080312

REACTIONS (1)
  - Aplastic anaemia [Recovered/Resolved with Sequelae]

NARRATIVE: CASE EVENT DATE: 20080312
